FAERS Safety Report 6533470-3 (Version None)
Quarter: 2010Q1

REPORT INFORMATION
  Report Type: 
  Country: None (occurrence: None)
  Receive Date: 20100111
  Receipt Date: 20091023
  Transmission Date: 20100710
  Serious: No
  Sender: FDA-Public Use
  Company Number: A0813156A

PATIENT
  Age: 75 Year
  Sex: Male

DRUGS (8)
  1. REQUIP XL [Suspect]
     Indication: PARKINSON'S DISEASE
     Dosage: 2MG PER DAY
     Route: 048
     Dates: start: 20091022
  2. ATENOLOL [Concomitant]
  3. XANAX [Concomitant]
  4. PAXIL [Concomitant]
  5. SIMVASTATIN [Concomitant]
  6. FISH OIL [Concomitant]
  7. BABY ASPIRIN [Concomitant]
  8. OMEPRAZOLE [Concomitant]

REACTIONS (7)
  - ASTHENIA [None]
  - DYSKINESIA [None]
  - HYPERHIDROSIS [None]
  - MUSCLE TWITCHING [None]
  - POOR QUALITY SLEEP [None]
  - SWELLING FACE [None]
  - TREMOR [None]
